FAERS Safety Report 18223462 (Version 2)
Quarter: 2020Q3

REPORT INFORMATION
  Report Type: Other
  Country: TR (occurrence: TR)
  Receive Date: 20200902
  Receipt Date: 20200903
  Transmission Date: 20201103
  Serious: Yes (Other)
  Sender: FDA-Public Use
  Company Number: TR-DEXPHARM-20200767

PATIENT
  Age: 42 Year
  Sex: Female

DRUGS (1)
  1. DICLOFENAC INJECTION [Suspect]
     Active Substance: DICLOFENAC
     Indication: HEADACHE

REACTIONS (1)
  - Skin ulcer [Unknown]
